FAERS Safety Report 6340926-5 (Version None)
Quarter: 2009Q3

REPORT INFORMATION
  Report Type: 
  Country: None (occurrence: None)
  Receive Date: 20090902
  Receipt Date: 20090902
  Transmission Date: 20100115
  Serious: Yes (Hospitalization)
  Sender: FDA-Public Use
  Company Number: None

PATIENT
  Sex: Male
  Weight: 114.72 kg

DRUGS (6)
  1. CYCLOPHOSPHAMIDE [Suspect]
     Dosage: 4230 MG
     Dates: end: 20071219
  2. DEXAMETHASONE [Suspect]
     Dosage: 160 MG
     Dates: end: 20071218
  3. G-CSF (FILGRASTIM, AMGEN) [Suspect]
     Dosage: 4800 MG
     Dates: end: 20071229
  4. VELCADE [Suspect]
     Dosage: 6 MG
     Dates: end: 20071218
  5. RITUXIMAB (MOAB C2B8 ANTI CD20, CHIMERIC) [Suspect]
     Dosage: 881 MG
     Dates: end: 20071216
  6. VINCRISTINE SULFATE [Suspect]
     Dosage: 1 MG
     Dates: end: 20071218

REACTIONS (6)
  - CATHETER SITE ERYTHEMA [None]
  - CATHETER SITE RELATED REACTION [None]
  - CATHETER SITE SWELLING [None]
  - CHILLS [None]
  - LYMPHOPENIA [None]
  - PYREXIA [None]
